FAERS Safety Report 5869609-2 (Version None)
Quarter: 2008Q3

REPORT INFORMATION
  Report Type: 
  Country: None (occurrence: None)
  Receive Date: 20080904
  Receipt Date: 20080417
  Transmission Date: 20090109
  Serious: No
  Sender: FDA-Public Use
  Company Number: US-KINGPHARMUSA00001-K200800450

PATIENT

DRUGS (3)
  1. CYTOMEL [Suspect]
     Dosage: 75 MCG, QD
     Route: 048
     Dates: start: 20020101, end: 20080401
  2. CYTOMEL [Suspect]
     Dosage: 75 MCG, QD
     Route: 048
     Dates: start: 20080401, end: 20080401
  3. CYTOMEL [Suspect]
     Dosage: 75 MCG, QD
     Route: 048
     Dates: start: 20080401

REACTIONS (2)
  - FATIGUE [None]
  - HYPERSOMNIA [None]
